FAERS Safety Report 9063786 (Version 1)
Quarter: 2013Q1

REPORT INFORMATION
  Report Type: Report from Study
  Country: US (occurrence: US)
  Receive Date: 20130129
  Receipt Date: 20130129
  Transmission Date: 20140127
  Serious: No
  Sender: FDA-Public Use
  Company Number: US-ABBOTT-12P-163-0944522-00

PATIENT
  Sex: Male

DRUGS (13)
  1. HUMIRA 40 MG/0.8 ML PEN [Suspect]
     Indication: RHEUMATOID ARTHRITIS
     Dates: start: 201110
  2. METFORMIN [Concomitant]
     Indication: DIABETES MELLITUS
  3. AMARYL [Concomitant]
     Indication: DIABETES MELLITUS
     Dosage: 4MG DAILY
  4. PROTONIX [Concomitant]
     Indication: PROPHYLAXIS
  5. LOVASA [Concomitant]
     Indication: BLOOD TRIGLYCERIDES
  6. PROPRANOLOL [Concomitant]
     Indication: PRODUCT USED FOR UNKNOWN INDICATION
     Dosage: 40MG DAILY
  7. ZYPREXA [Concomitant]
     Indication: CONVULSION
     Dosage: 15MG DAILY
  8. KLONOPIN [Concomitant]
     Indication: ANXIETY
  9. PERCOCET [Concomitant]
     Indication: NECK PAIN
     Dosage: 10/325 UP TO 4 DAILY
  10. VITAMIN B1 [Concomitant]
     Indication: VITAMIN SUPPLEMENTATION
     Dosage: 1000MG DAILY
  11. B12 [Concomitant]
     Indication: VITAMIN SUPPLEMENTATION
     Dosage: 2500MCG DAILY
  12. FOLIC ACID [Concomitant]
     Indication: VITAMIN SUPPLEMENTATION
     Dosage: 1MG DAILY
  13. LYRICA [Concomitant]
     Indication: NEUROPATHY PERIPHERAL

REACTIONS (3)
  - Injection site pain [Recovered/Resolved]
  - Wrong technique in drug usage process [Unknown]
  - Incorrect dose administered [Unknown]
